FAERS Safety Report 6967442-1 (Version None)
Quarter: 2010Q3

REPORT INFORMATION
  Report Type: 
  Country: None (occurrence: None)
  Receive Date: 20100907
  Receipt Date: 20100823
  Transmission Date: 20110219
  Serious: Yes (Other)
  Sender: FDA-Public Use
  Company Number: PHHY2010DE49028

PATIENT
  Sex: Male

DRUGS (3)
  1. RASILEZ [Suspect]
     Dosage: 300 MG PER DAY
     Route: 048
     Dates: start: 20071201, end: 20100601
  2. CARMEN [Concomitant]
  3. BETA BLOCKING AGENTS [Concomitant]
     Dosage: UNK
     Dates: start: 20100601

REACTIONS (4)
  - BLOOD PRESSURE INADEQUATELY CONTROLLED [None]
  - BLOOD PRESSURE SYSTOLIC INCREASED [None]
  - HIP SURGERY [None]
  - STRESS [None]
